FAERS Safety Report 6033497-4 (Version None)
Quarter: 2009Q1

REPORT INFORMATION
  Report Type: 
  Country: None (occurrence: None)
  Receive Date: 20090109
  Receipt Date: 20090102
  Transmission Date: 20090719
  Serious: Yes (Other)
  Sender: FDA-Public Use
  Company Number: BE-ROXANE LABORATORIES, INC.-2009-RO-00006RO

PATIENT
  Age: 22 Year
  Sex: Female

DRUGS (12)
  1. CLARITHROMYCIN [Suspect]
     Indication: PNEUMONIA LEGIONELLA
     Route: 042
  2. AZATHIOPRINE [Suspect]
  3. MIDAZOLAM HCL [Suspect]
  4. TACROLIMUS [Suspect]
     Indication: IMMUNOSUPPRESSANT DRUG THERAPY
     Route: 048
  5. TACROLIMUS [Suspect]
     Route: 042
  6. METHYLPREDNISOLONE 16MG TAB [Suspect]
     Indication: IMMUNOSUPPRESSANT DRUG THERAPY
     Route: 048
  7. MEROPENEM [Suspect]
     Indication: EVIDENCE BASED TREATMENT
  8. GANCICLOVIR [Suspect]
     Indication: ANTIVIRAL PROPHYLAXIS
  9. GANCICLOVIR [Suspect]
     Indication: ANTIFUNGAL PROPHYLAXIS
  10. COTRIM [Suspect]
     Indication: ANTIVIRAL PROPHYLAXIS
  11. COTRIM [Suspect]
     Indication: ANTIFUNGAL PROPHYLAXIS
  12. PIRITRAMIDE [Suspect]

REACTIONS (2)
  - DRUG INTERACTION [None]
  - DRUG TOXICITY [None]
